FAERS Safety Report 22608651 (Version 1)
Quarter: 2023Q2

REPORT INFORMATION
  Report Type: Spontaneous
  Country: CN (occurrence: CN)
  Receive Date: 20230616
  Receipt Date: 20230616
  Transmission Date: 20230722
  Serious: Yes (Death, Other)
  Sender: FDA-Public Use
  Company Number: CN-STRIDES ARCOLAB LIMITED-2023SP009512

PATIENT
  Age: 20 Year
  Sex: Female

DRUGS (4)
  1. TACROLIMUS [Suspect]
     Active Substance: TACROLIMUS
     Indication: Immunosuppressant drug therapy
     Dosage: 6.4 NANOGRAM PER MILLLIITER
     Route: 065
  2. TACROLIMUS [Suspect]
     Active Substance: TACROLIMUS
     Indication: Renal transplant
  3. PREDNISOLONE [Suspect]
     Active Substance: PREDNISOLONE
     Indication: Immunosuppressant drug therapy
     Dosage: 5 MILLIGRAM PER DAY
     Route: 065
  4. PREDNISOLONE [Suspect]
     Active Substance: PREDNISOLONE
     Indication: Renal transplant
     Dosage: 15 MILLIGRAM PER DAY
     Route: 065

REACTIONS (6)
  - Multiple organ dysfunction syndrome [Fatal]
  - Burkitt^s lymphoma [Fatal]
  - Metastases to bone marrow [Fatal]
  - Pulmonary tuberculosis [Unknown]
  - Fungal infection [Unknown]
  - Bacterial infection [Unknown]
